FAERS Safety Report 9103407 (Version 3)
Quarter: 2013Q2

REPORT INFORMATION
  Report Type: Spontaneous
  Country: US (occurrence: US)
  Receive Date: 20130219
  Receipt Date: 20130411
  Transmission Date: 20140414
  Serious: Yes (Hospitalization)
  Sender: FDA-Public Use
  Company Number: US-PFIZER INC-2013061615

PATIENT
  Age: 81 Year
  Sex: Female
  Weight: 66 kg

DRUGS (17)
  1. FUROSEMIDE [Concomitant]
     Dosage: 40 MG, 2X/DAY
     Route: 048
  2. LABETALOL [Concomitant]
     Dosage: 200 MG, 2X/DAY
     Route: 048
     Dates: start: 20130211
  3. SIMVASTATIN [Concomitant]
     Dosage: 10 MG, 1X/DAY (IN EVENING)
     Route: 048
  4. CUMADIN [Concomitant]
     Dosage: 7.5 MG, AS NEEDED
  5. METOPROLOL TARTRATE [Concomitant]
     Dosage: 25 MG, 2X/DAY
     Route: 048
     Dates: start: 20121005
  6. DIGOXIN [Concomitant]
     Dosage: 125 UG, 1X/DAY
     Route: 048
     Dates: end: 20130211
  7. MAGNESIUM [Concomitant]
     Dosage: 100 MG, UNK
     Dates: end: 20130211
  8. VITAMIN B6 [Concomitant]
     Dosage: 100 MG, 1X/DAY
     Dates: start: 20130211, end: 20130211
  9. PRESERVISION [Concomitant]
     Dosage: UNK
  10. TIROSINT [Concomitant]
     Dosage: 75 UG, 1X/DAY
     Route: 048
  11. CALCIUM [Concomitant]
     Dosage: 600 MG (1500 MG)
  12. POTASSIUM CHLORIDE [Concomitant]
     Dosage: 20 MEQ, 1X/DAY WITH FOOD
     Route: 048
  13. PROCARDIA XL [Suspect]
     Indication: HYPERTENSION
     Dosage: 60 MG, 1X/DAY
     Route: 048
  14. ACCUPRIL [Suspect]
     Indication: CARDIAC FAILURE
     Dosage: 10 MG, 2X/DAY
     Route: 048
     Dates: start: 2005
  15. ACCUPRIL [Suspect]
     Dosage: 10 MG, 1X/DAY
     Route: 048
     Dates: start: 20121005
  16. AUGMENTIN [Suspect]
     Indication: STREPTOCOCCAL INFECTION
     Dosage: 1 DF, 2X/DAY
     Route: 048
  17. FUROSEMIDE [Concomitant]
     Dosage: 40 MG, 1X/DAY

REACTIONS (10)
  - Cardiac failure congestive [Recovered/Resolved]
  - Rash [Recovered/Resolved]
  - Oropharyngeal pain [Unknown]
  - Fluid overload [Unknown]
  - Oedema [Unknown]
  - Headache [Unknown]
  - Dyspnoea [Unknown]
  - Ear pain [Unknown]
  - Neck pain [Unknown]
  - Weight increased [Unknown]
